FAERS Safety Report 22081151 (Version 1)
Quarter: 2023Q1

REPORT INFORMATION
  Report Type: Report from Study
  Country: IN (occurrence: IN)
  Receive Date: 20230309
  Receipt Date: 20230309
  Transmission Date: 20230418
  Serious: Yes (Death)
  Sender: FDA-Public Use
  Company Number: IN-002147023-NVSC2022IN152478

PATIENT

DRUGS (1)
  1. RUXOLITINIB [Suspect]
     Active Substance: RUXOLITINIB
     Indication: Primary myelofibrosis
     Dosage: 5 MG, BID
     Route: 065
     Dates: start: 20211123

REACTIONS (2)
  - Platelet count decreased [Unknown]
  - Death [Fatal]

NARRATIVE: CASE EVENT DATE: 20220601
